FAERS Safety Report 8345555-X (Version None)
Quarter: 2012Q2

REPORT INFORMATION
  Report Type: 
  Country: None (occurrence: None)
  Receive Date: 20120508
  Receipt Date: 20120502
  Transmission Date: 20120825
  Serious: Yes (Hospitalization, Disabling)
  Sender: FDA-Public Use
  Company Number: FR-GILEAD-2012-0054523

PATIENT
  Sex: Male

DRUGS (7)
  1. LAMIVUDINE [Suspect]
     Indication: HEPATITIS B
     Dosage: 100 MG, QD
     Route: 048
     Dates: start: 20030101, end: 20120325
  2. MINISINTROM [Concomitant]
  3. LANTUS [Concomitant]
  4. SECTRAL [Concomitant]
  5. VALSARTAN [Concomitant]
  6. HEPSERA [Suspect]
     Indication: HEPATITIS B
     Dosage: 10 MG, QD
     Route: 048
     Dates: start: 20040101, end: 20120325
  7. CALCIDOSE VITAMINE D [Concomitant]

REACTIONS (3)
  - BLOOD PHOSPHORUS DECREASED [None]
  - MULTIPLE FRACTURES [None]
  - RENAL TUBULAR DISORDER [None]
